FAERS Safety Report 19831544 (Version 1)
Quarter: 2021Q3

REPORT INFORMATION
  Report Type: Spontaneous
  Country: US (occurrence: US)
  Receive Date: 20210915
  Receipt Date: 20210915
  Transmission Date: 20211014
  Serious: Yes (Hospitalization)
  Sender: FDA-Public Use
  Company Number: US-STRIDES ARCOLAB LIMITED-2021SP004228

PATIENT
  Age: 33 Year
  Sex: Female

DRUGS (1)
  1. TACROLIMUS. [Suspect]
     Active Substance: TACROLIMUS
     Indication: LUNG TRANSPLANT
     Dosage: 0.5 MILLIGRAM PER DAY
     Route: 065

REACTIONS (4)
  - Acute kidney injury [Recovered/Resolved]
  - Off label use [Unknown]
  - Optic neuropathy [Not Recovered/Not Resolved]
  - Cellulitis [Unknown]
